FAERS Safety Report 9339927 (Version 2)
Quarter: 2014Q2

REPORT INFORMATION
  Report Type: Spontaneous
  Country: US (occurrence: US)
  Receive Date: 20130610
  Receipt Date: 20140609
  Transmission Date: 20141212
  Serious: Yes (Other)
  Sender: FDA-Public Use
  Company Number: US-ASTELLAS-2013US005009

PATIENT
  Age: 79 Year
  Sex: Male

DRUGS (22)
  1. XTANDI [Suspect]
     Indication: PROSTATE CANCER
     Route: 048
     Dates: start: 20130207
  2. XTANDI [Suspect]
     Route: 048
  3. LUPRON [Concomitant]
     Indication: PROSTATE CANCER
     Dosage: 22.5 MG, EVERY 3 MONTHS
     Route: 065
     Dates: start: 200912
  4. LUPRON [Concomitant]
     Dosage: 30 MG, EVERY 3 MONTHS
     Route: 065
     Dates: start: 20120724
  5. PREDNISONE [Concomitant]
     Indication: PROSTATE CANCER
     Route: 065
     Dates: start: 201009, end: 20110922
  6. PREDNISONE [Concomitant]
     Route: 065
     Dates: start: 20110922
  7. XGEVA [Concomitant]
     Indication: PROSTATE CANCER
     Dosage: UNK, UNKNOWN FREQ.
     Route: 065
     Dates: start: 20120925
  8. METFORMIN                          /00082702/ [Concomitant]
     Indication: PRODUCT USED FOR UNKNOWN INDICATION
     Route: 048
  9. WARFARIN [Concomitant]
     Indication: ATRIAL FIBRILLATION
     Dosage: 5MG DAILY EXCEPT 2.5MG 2 DAYS
     Route: 065
  10. TRICOR                             /00090101/ [Concomitant]
     Indication: PRODUCT USED FOR UNKNOWN INDICATION
     Dosage: 48 MG, EVERY EVENING
     Route: 048
  11. DETROL [Concomitant]
     Indication: PRODUCT USED FOR UNKNOWN INDICATION
     Route: 048
  12. TRIAMTERENE/HYDROCHLOROTHIAZIDE [Concomitant]
     Indication: PRODUCT USED FOR UNKNOWN INDICATION
     Dosage: 37.5 / 25  MG, ONCE DAILY
     Route: 048
  13. SYNTHROID [Concomitant]
     Indication: PRODUCT USED FOR UNKNOWN INDICATION
     Route: 048
  14. SIMVASTATIN [Concomitant]
     Indication: PRODUCT USED FOR UNKNOWN INDICATION
     Route: 048
  15. CENTRUM SILVER                     /02363801/ [Concomitant]
     Indication: PRODUCT USED FOR UNKNOWN INDICATION
     Dosage: UNK, UNKNOWN FREQ.
     Route: 065
  16. CALCIUM [Concomitant]
     Indication: PRODUCT USED FOR UNKNOWN INDICATION
     Route: 048
  17. VITAMIN D                          /00107901/ [Concomitant]
     Indication: PRODUCT USED FOR UNKNOWN INDICATION
     Route: 065
  18. TETRACYCLINE HYDROCHLORIDE [Concomitant]
     Indication: RASH
     Dosage: 250 MG,EVERY DAY AS NEEDED
     Route: 048
  19. ZOLOFT [Concomitant]
     Indication: PRODUCT USED FOR UNKNOWN INDICATION
     Route: 065
  20. VITAMIN B12                        /00056201/ [Concomitant]
     Indication: PRODUCT USED FOR UNKNOWN INDICATION
     Route: 065
  21. TYLENOL                            /00020001/ [Concomitant]
     Indication: BACK PAIN
     Dosage: UNK, AS NEEDED
     Route: 065
  22. IMODIUM [Concomitant]
     Indication: DIARRHOEA
     Dosage: UNK, UNKNOWN FREQ.
     Route: 065

REACTIONS (1)
  - Malignant neoplasm progression [Not Recovered/Not Resolved]
